FAERS Safety Report 8395081-7 (Version None)
Quarter: 2012Q2

REPORT INFORMATION
  Report Type: 
  Country: None (occurrence: None)
  Receive Date: 20120523
  Receipt Date: 20110510
  Transmission Date: 20120825
  Serious: Yes (Hospitalization)
  Sender: FDA-Public Use
  Company Number: 163-21880-11031831

PATIENT
  Age: 66 Year
  Sex: Female

DRUGS (27)
  1. AMBIEN [Concomitant]
  2. POTASSIUM CHLORIDE [Concomitant]
  3. LANTUS [Concomitant]
  4. ANTIBIOTICS (ANTIBIOTICS) [Concomitant]
  5. REVLIMID [Suspect]
     Indication: MULTIPLE MYELOMA
     Dosage: 10 MG, DAILY X 14 DAYS, PO ; 10 MG, DAILY X 14 DAYS, 2 WEEKS REST, PO
     Route: 048
     Dates: start: 20110214, end: 20110228
  6. REVLIMID [Suspect]
     Indication: MULTIPLE MYELOMA
     Dosage: 10 MG, DAILY X 14 DAYS, PO ; 10 MG, DAILY X 14 DAYS, 2 WEEKS REST, PO
     Route: 048
     Dates: start: 20110314
  7. ASPIRIN [Concomitant]
  8. PROZAC [Concomitant]
  9. SOLU-MEDROL [Concomitant]
  10. ZOMETA [Concomitant]
  11. NORVASC [Concomitant]
  12. LYRICA [Concomitant]
  13. ALBUTEROL [Concomitant]
  14. DEXAMETHASONE [Concomitant]
  15. LASIX [Concomitant]
  16. LORTAB [Concomitant]
  17. ROBAXIN [Concomitant]
  18. ACETAMINOPHEN [Concomitant]
  19. VELCADE [Concomitant]
  20. AMLODIPINE [Concomitant]
  21. MIRALAX [Concomitant]
  22. NOVOLOG [Concomitant]
  23. BACTRIM [Concomitant]
  24. ACYCLOVIR [Concomitant]
  25. CACIUM CARBONATE (CALCIUM CARBONATE) [Concomitant]
  26. ESTRADIOL [Concomitant]
  27. IPRATROPIUM BROMIDE [Concomitant]

REACTIONS (1)
  - PNEUMONIA [None]
